FAERS Safety Report 4888541-4 (Version None)
Quarter: 2005Q4

REPORT INFORMATION
  Report Type: 
  Country: None (occurrence: None)
  Receive Date: 20051215
  Receipt Date: 20050516
  Transmission Date: 20060501
  Serious: Yes (Hospitalization)
  Sender: FDA-Public Use
  Company Number: 2005063226

PATIENT
  Age: 63 Year
  Sex: Female
  Weight: 172.3669 kg

DRUGS (18)
  1. BEXTRA [Suspect]
     Indication: ARTHRALGIA
     Dosage: 10 MG, ORAL
     Route: 048
     Dates: start: 20040201
  2. HUMULIN R [Concomitant]
  3. FUROSEMIDE [Concomitant]
  4. LEVOTHYROXINE SODIUM [Concomitant]
  5. ATENOLOL [Concomitant]
  6. METFORMIN HCL [Concomitant]
  7. NOVOLIN N [Concomitant]
  8. CAPTOPRIL [Concomitant]
  9. METHYLPREDNISOLONE [Concomitant]
  10. ALBUTEROL [Concomitant]
  11. TRAMADOL HCL [Concomitant]
  12. PROPOXYPHENE NAPSYLATE W/ ACETAMINOPHEN [Concomitant]
  13. DILTIAZEM [Concomitant]
  14. TEQUIN [Concomitant]
  15. PREDNISONE [Concomitant]
  16. ATROVENT [Concomitant]
  17. DUONEB (IPRATROPIUM BROMIDE, SALBUTAMOL SULFATE) [Concomitant]
  18. COMBIVENT [Concomitant]

REACTIONS (6)
  - CARDIAC FAILURE [None]
  - CHEST PAIN [None]
  - DRUG INEFFECTIVE [None]
  - HYPERTENSION [None]
  - MUSCLE ATROPHY [None]
  - PNEUMONIA [None]
